FAERS Safety Report 25223187 (Version 1)
Quarter: 2025Q2

REPORT INFORMATION
  Report Type: Spontaneous
  Country: US (occurrence: US)
  Receive Date: 20250422
  Receipt Date: 20250422
  Transmission Date: 20250716
  Serious: No
  Sender: ROCHE
  Company Number: US-ROCHE-10000263717

PATIENT
  Sex: Male

DRUGS (2)
  1. ACTEMRA ACTPEN [Suspect]
     Active Substance: TOCILIZUMAB
     Indication: Rheumatoid arthritis
     Dosage: 162 MG/0.9M
     Route: 058
     Dates: start: 20250320
  2. ORENCIA [Concomitant]
     Active Substance: ABATACEPT

REACTIONS (1)
  - Arthralgia [Unknown]
